FAERS Safety Report 5400203-3 (Version None)
Quarter: 2007Q3

REPORT INFORMATION
  Report Type: 
  Country: None (occurrence: None)
  Receive Date: 20070727
  Receipt Date: 20070727
  Transmission Date: 20080115
  Serious: No
  Sender: FDA-Public Use
  Company Number: None

PATIENT
  Age: 61 Year
  Sex: Male

DRUGS (2)
  1. WARFARIN SODIUM [Suspect]
     Indication: ATRIAL FIBRILLATION
     Dosage: 5MG EVERY DAY PO
     Route: 048
     Dates: start: 20070614, end: 20070707
  2. WARFARIN SODIUM [Suspect]
     Indication: MITRAL VALVE INCOMPETENCE
     Dosage: 5MG EVERY DAY PO
     Route: 048
     Dates: start: 20070614, end: 20070707

REACTIONS (2)
  - HAEMATOMA [None]
  - INTERNATIONAL NORMALISED RATIO ABNORMAL [None]
